FAERS Safety Report 17868738 (Version 1)
Quarter: 2020Q2

REPORT INFORMATION
  Report Type: Spontaneous
  Country: NL (occurrence: NL)
  Receive Date: 20200607
  Receipt Date: 20200607
  Transmission Date: 20200714
  Serious: Yes (Other)
  Sender: FDA-Public Use
  Company Number: NL-ROCHE-2613103

PATIENT
  Sex: Female

DRUGS (6)
  1. TAMOXIFEN [Suspect]
     Active Substance: TAMOXIFEN
     Indication: BREAST CANCER
     Dosage: UNK
     Route: 065
     Dates: start: 201709
  2. PALBOCICLIB [Suspect]
     Active Substance: PALBOCICLIB
     Indication: BREAST CANCER
     Route: 065
  3. CAPECITABINE. [Suspect]
     Active Substance: CAPECITABINE
     Indication: BREAST CANCER
     Dosage: UNK
     Route: 048
     Dates: start: 201901
  4. ZOLEDRONATE [Suspect]
     Active Substance: ZOLEDRONIC ACID
     Indication: BREAST CANCER
     Dosage: UNK
     Route: 065
     Dates: start: 201811
  5. LUTEINIZING HORMONE-RELEASING HORMONE [Suspect]
     Active Substance: GONADORELIN
     Indication: BREAST CANCER
     Dosage: UNK
     Route: 065
     Dates: start: 201709
  6. PACLITAXEL. [Suspect]
     Active Substance: PACLITAXEL
     Indication: BREAST CANCER
     Dosage: UNK OT, QW
     Route: 065
     Dates: start: 201907, end: 20200110

REACTIONS (4)
  - Adenocarcinoma [Unknown]
  - Metastases to bone [Unknown]
  - Activated PI3 kinase delta syndrome [Unknown]
  - Metastases to liver [Unknown]

NARRATIVE: CASE EVENT DATE: 201811
